FAERS Safety Report 4906074-3 (Version None)
Quarter: 2006Q1

REPORT INFORMATION
  Report Type: 
  Country: None (occurrence: None)
  Receive Date: 20060209
  Receipt Date: 20060123
  Transmission Date: 20060701
  Serious: Yes (Hospitalization, Other)
  Sender: FDA-Public Use
  Company Number: PHEH2006US01390

PATIENT
  Sex: Male

DRUGS (1)
  1. AREDIA [Suspect]

REACTIONS (2)
  - STAPHYLOCOCCAL INFECTION [None]
  - THROMBOSIS [None]
